FAERS Safety Report 18312245 (Version 1)
Quarter: 2020Q3

REPORT INFORMATION
  Report Type: Spontaneous
  Country: US (occurrence: US)
  Receive Date: 20200925
  Receipt Date: 20200925
  Transmission Date: 20201103
  Serious: Yes (Hospitalization)
  Sender: FDA-Public Use
  Company Number: None

PATIENT
  Age: 69 Year
  Sex: Male
  Weight: 69 kg

DRUGS (1)
  1. RIVAROXABAN [Suspect]
     Active Substance: RIVAROXABAN
     Indication: ATRIAL FIBRILLATION
     Route: 048

REACTIONS (5)
  - Subdural haemorrhage [None]
  - Subarachnoid haemorrhage [None]
  - Visual impairment [None]
  - Cerebral haemorrhage [None]
  - Haemorrhagic stroke [None]

NARRATIVE: CASE EVENT DATE: 20200924
